FAERS Safety Report 4530511-X (Version None)
Quarter: 2004Q4

REPORT INFORMATION
  Report Type: 
  Country: None (occurrence: None)
  Receive Date: 20041216
  Receipt Date: 20041129
  Transmission Date: 20050328
  Serious: Yes (Disabling)
  Sender: FDA-Public Use
  Company Number: 29852

PATIENT

DRUGS (8)
  1. BSS PLUS [Suspect]
     Indication: SURGERY
     Dosage: IO
     Dates: start: 20041120, end: 20041120
  2. ALCAINE [Suspect]
     Indication: SURGERY
     Dosage: OPHT
     Route: 047
     Dates: start: 20041120
  3. MAXITROL [Suspect]
     Indication: SURGERY
     Dosage: OPHT
     Route: 047
     Dates: start: 20041120, end: 20041120
  4. CILOXAN [Suspect]
     Indication: SURGERY
     Dosage: OPHT
     Route: 047
     Dates: start: 20041120
  5. DEXAMETHASONE [Concomitant]
  6. ATROPINE SULFATE [Concomitant]
  7. PHENYLPHRINE [Concomitant]
  8. VISCOMET [Concomitant]

REACTIONS (3)
  - CORNEAL ULCER [None]
  - ENDOPHTHALMITIS [None]
  - POST PROCEDURAL COMPLICATION [None]
